FAERS Safety Report 5016368-1 (Version None)
Quarter: 2006Q2

REPORT INFORMATION
  Report Type: 
  Country: None (occurrence: None)
  Receive Date: 20060526
  Receipt Date: 20060510
  Transmission Date: 20061013
  Serious: Yes (Hospitalization)
  Sender: FDA-Public Use
  Company Number: JP200603006700

PATIENT
  Age: 61 Year
  Sex: Female
  Weight: 152 kg

DRUGS (9)
  1. LISPRO (LISPRO 50LIS50NPL)PEN, DISPOSABLE [Suspect]
     Indication: DIABETES MELLITUS NON-INSULIN-DEPENDENT
     Dosage: 10 U, EACH MORNING; SEE IMAGE
     Dates: start: 20050418, end: 20050812
  2. LISPRO (LISPRO 50LIS50NPL)PEN, DISPOSABLE [Suspect]
     Indication: DIABETES MELLITUS NON-INSULIN-DEPENDENT
     Dosage: 10 U, EACH MORNING; SEE IMAGE
     Dates: start: 20050418, end: 20050812
  3. LISPRO (LISPRO 50LIS50NPL)PEN, DISPOSABLE [Suspect]
     Indication: DIABETES MELLITUS NON-INSULIN-DEPENDENT
     Dosage: 10 U, EACH MORNING; SEE IMAGE
     Dates: start: 20050418, end: 20050812
  4. HUMALOG (HUMALOG PEN) [Concomitant]
  5. ADALAT CR /THA/ (NIFEDIPINE) TABLET [Concomitant]
  6. DOXAZOSIN MESYLATE [Concomitant]
  7. GASMOTIN (MOSAPRIDE CITRATE) [Concomitant]
  8. ANPLAG (SARPOGRELATE HYDROCHLORIDE) [Concomitant]
  9. DEPAS (ETIZOLAM) [Concomitant]

REACTIONS (4)
  - CARDIAC FAILURE [None]
  - CONDITION AGGRAVATED [None]
  - HYPERGLYCAEMIA [None]
  - ORAL INTAKE REDUCED [None]
